FAERS Safety Report 8831290 (Version 1)
Quarter: 2012Q4

REPORT INFORMATION
  Report Type: 
  Country: GR (occurrence: GR)
  Receive Date: 20121008
  Receipt Date: 20121008
  Transmission Date: 20130627
  Serious: Yes (Hospitalization)
  Sender: FDA-Public Use
  Company Number: GR-PFIZER INC-2012243798

PATIENT
  Age: 67 Year
  Sex: Female

DRUGS (5)
  1. NORVASC [Suspect]
     Indication: HYPERTENSION
     Dosage: 5 mg, 2x/day
     Route: 048
     Dates: start: 201108
  2. NORVASC [Suspect]
     Dosage: 5 mg, 1x/day
     Dates: end: 201206
  3. HEPARIN [Suspect]
     Dosage: UNK
     Dates: start: 201108
  4. ZARATOR ^PFIZER^ [Concomitant]
     Indication: BLOOD CHOLESTEROL INCREASED
     Dosage: UNK
     Dates: end: 2012
  5. GLUCOPHAGE [Concomitant]
     Indication: BLOOD GLUCOSE INCREASED
     Dosage: UNK
     Dates: end: 2012

REACTIONS (4)
  - Gastrointestinal haemorrhage [Recovered/Resolved]
  - Cough [Not Recovered/Not Resolved]
  - Vomiting [Not Recovered/Not Resolved]
  - Pruritus [Not Recovered/Not Resolved]
